FAERS Safety Report 4839909-3 (Version None)
Quarter: 2005Q4

REPORT INFORMATION
  Report Type: 
  Country: None (occurrence: None)
  Receive Date: 20051125
  Receipt Date: 20051114
  Transmission Date: 20060501
  Serious: Yes (Hospitalization)
  Sender: FDA-Public Use
  Company Number: 219454

PATIENT
  Age: 69 Year
  Sex: Female

DRUGS (3)
  1. MABTHERA                   (RITUXIMAB) [Suspect]
     Indication: LYMPHOMA
  2. GEMZAR [Suspect]
     Indication: LYMPHOMA
  3. OXALIPLATIN (OXALIPLATIN) [Suspect]
     Indication: LYMPHOMA

REACTIONS (2)
  - ACINETOBACTER INFECTION [None]
  - BLOOD CULTURE POSITIVE [None]
